FAERS Safety Report 8349753-0 (Version None)
Quarter: 2012Q2

REPORT INFORMATION
  Report Type: 
  Country: None (occurrence: None)
  Receive Date: 20120509
  Receipt Date: 20120509
  Transmission Date: 20120825
  Serious: No
  Sender: FDA-Public Use
  Company Number: None

PATIENT
  Age: 61 Year
  Sex: Female

DRUGS (1)
  1. COPAXONE [Suspect]
     Indication: MULTIPLE SCLEROSIS
     Dosage: 20MG DAILY SUBCUTANEOUS INJECTI
     Route: 058
     Dates: start: 20091110, end: 20120507

REACTIONS (4)
  - FEELING HOT [None]
  - CHEST DISCOMFORT [None]
  - PARAESTHESIA [None]
  - NAUSEA [None]
